FAERS Safety Report 14761271 (Version 1)
Quarter: 2018Q2

REPORT INFORMATION
  Report Type: Spontaneous
  Country: CN (occurrence: CN)
  Receive Date: 20180415
  Receipt Date: 20180415
  Transmission Date: 20180711
  Serious: Yes (Other)
  Sender: FDA-Public Use
  Company Number: PHHY2018CN060470

PATIENT
  Age: 33 Year
  Sex: Female

DRUGS (1)
  1. ETANERCEPT [Suspect]
     Active Substance: ETANERCEPT
     Indication: SAPHO SYNDROME
     Dosage: 25 MG, UNK
     Route: 041

REACTIONS (3)
  - Dermatitis psoriasiform [Unknown]
  - Drug ineffective [Unknown]
  - Paradoxical drug reaction [Unknown]
